FAERS Safety Report 5321712-1 (Version None)
Quarter: 2007Q2

REPORT INFORMATION
  Report Type: 
  Country: None (occurrence: None)
  Receive Date: 20070510
  Receipt Date: 20070320
  Transmission Date: 20071010
  Serious: No
  Sender: FDA-Public Use
  Company Number: US-PFIZER INC-2006133496

PATIENT
  Sex: Female

DRUGS (3)
  1. CELEBREX [Suspect]
     Indication: PAIN MANAGEMENT
     Route: 048
  2. BEXTRA [Suspect]
     Indication: PAIN MANAGEMENT
     Route: 048
     Dates: start: 20040301
  3. VIOXX [Suspect]
     Route: 048

REACTIONS (1)
  - NO ADVERSE EFFECT [None]
